FAERS Safety Report 8011468-6 (Version None)
Quarter: 2011Q4

REPORT INFORMATION
  Report Type: 
  Country: None (occurrence: None)
  Receive Date: 20111228
  Receipt Date: 20111214
  Transmission Date: 20120403
  Serious: No
  Sender: FDA-Public Use
  Company Number: US-PFIZER INC-2011305721

PATIENT
  Sex: Female
  Weight: 56.689 kg

DRUGS (11)
  1. ACETYLSALICYLIC ACID [Concomitant]
     Dosage: 81 MG, 2X/DAY
  2. BENADRYL [Concomitant]
     Dosage: 10 MG, 1X/DAY
  3. ASCORBIC ACID [Suspect]
     Indication: BLOOD COUNT ABNORMAL
     Dosage: UNK
     Dates: end: 20111212
  4. COREG [Concomitant]
     Dosage: 12.5 MG, 2X/DAY
  5. DICYCLOMINE [Concomitant]
     Indication: DIVERTICULITIS
     Dosage: UNK
  6. THEOPHYLLINE [Concomitant]
     Dosage: 300 MG, 1X/DAY
  7. METFORMIN [Concomitant]
     Dosage: 500 MG, 2X/DAY
  8. LOSARTAN [Concomitant]
     Dosage: 10 MG, 1X/DAY
  9. PROTONIX [Suspect]
     Indication: DYSPEPSIA
     Dosage: 40 MG, DAILY
     Dates: start: 20111203
  10. ZOCOR [Concomitant]
     Dosage: 40 MG, 1X/DAY
  11. PLAVIX [Concomitant]
     Dosage: 75 MG, 1X/DAY

REACTIONS (1)
  - CONSTIPATION [None]
